FAERS Safety Report 21096060 (Version 1)
Quarter: 2022Q3

REPORT INFORMATION
  Report Type: Spontaneous
  Country: IN (occurrence: IN)
  Receive Date: 20220718
  Receipt Date: 20220718
  Transmission Date: 20221027
  Serious: Yes (Other)
  Sender: FDA-Public Use
  Company Number: US-COLLEGIUM PHARMACEUTICAL, INC.-2022CGM00430

PATIENT
  Age: 22 Year
  Sex: Male

DRUGS (4)
  1. TAPENTADOL [Suspect]
     Active Substance: TAPENTADOL
     Dosage: 2-3 TABLETS PER DAY
     Route: 065
  2. TAPENTADOL [Suspect]
     Active Substance: TAPENTADOL
     Dosage: 5 TABLETS
     Route: 042
  3. TAPENTADOL [Suspect]
     Active Substance: TAPENTADOL
     Dosage: 10 TABLETS
     Route: 042
  4. HEROIN [Concomitant]
     Active Substance: DIAMORPHINE
     Dosage: OCCASIONAL
     Route: 065

REACTIONS (4)
  - Necrotising fasciitis [Recovered/Resolved]
  - Withdrawal syndrome [Recovered/Resolved]
  - Incorrect route of product administration [Recovered/Resolved]
  - Drug abuse [Recovered/Resolved]
